FAERS Safety Report 5117394-4 (Version None)
Quarter: 2006Q3

REPORT INFORMATION
  Report Type: 
  Country: None (occurrence: None)
  Receive Date: 20060926
  Receipt Date: 20060905
  Transmission Date: 20061208
  Serious: Yes (Other)
  Sender: FDA-Public Use
  Company Number: 2003-12-0331

PATIENT
  Age: 70 Year
  Sex: Male
  Weight: 106 kg

DRUGS (20)
  1. PEG-INTRON [Suspect]
     Indication: NON-HODGKIN'S LYMPHOMA UNSPECIFIED HISTOLOGY INDOLENT STAGE IV
     Dosage: 50 MCG; QW; SC
     Route: 058
     Dates: start: 20031103, end: 20031123
  2. RITUXIMAB [Suspect]
     Indication: NON-HODGKIN'S LYMPHOMA UNSPECIFIED HISTOLOGY INDOLENT STAGE IV
     Dosage: 814 MG; QW; IV
     Route: 042
     Dates: start: 20031118, end: 20031125
  3. ALPRAZOLAM [Concomitant]
  4. DESLORATADINE (S-P) [Concomitant]
  5. HERBS AND FLOWERS [Concomitant]
  6. FLUOXETINE [Concomitant]
  7. ACETAMINOPHEN W/DIPHENHYDRAMINE HYDROCHLORIDE [Concomitant]
  8. BUPROPION HYDROCHLORIDE [Concomitant]
  9. ECHINACEA EXTRACT [Concomitant]
  10. SIMVASTATIN [Concomitant]
  11. FINASTERIDE [Concomitant]
  12. TAMSULOSIN HCL [Concomitant]
  13. ......... [Concomitant]
  14. ................ [Concomitant]
  15. .................. [Concomitant]
  16. NORMAL SALINE [Concomitant]
  17. ....................... [Concomitant]
  18. DIPHENHYDRAMINE HCL [Concomitant]
  19. .............................. [Concomitant]
  20. LORAZEPAM [Concomitant]

REACTIONS (13)
  - ARTHRALGIA [None]
  - BODY TEMPERATURE INCREASED [None]
  - CHILLS [None]
  - DRUG INTERACTION [None]
  - DRUG TOXICITY [None]
  - MALAISE [None]
  - MYALGIA [None]
  - PNEUMONIA [None]
  - PROTEINURIA [None]
  - RASH ERYTHEMATOUS [None]
  - RASH GENERALISED [None]
  - RASH MACULAR [None]
  - SERUM SICKNESS [None]
